FAERS Safety Report 11893894 (Version 1)
Quarter: 2016Q1

REPORT INFORMATION
  Report Type: Spontaneous
  Country: JP (occurrence: JP)
  Receive Date: 20160107
  Receipt Date: 20160107
  Transmission Date: 20160526
  Serious: Yes (Death, Hospitalization, Other)
  Sender: FDA-Public Use
  Company Number: JP-PAR PHARMACEUTICAL COMPANIES-2016SCPR015057

PATIENT

DRUGS (3)
  1. PREDNISOLONE. [Concomitant]
     Active Substance: PREDNISOLONE
     Indication: CHRONIC MYELOMONOCYTIC LEUKAEMIA
     Dosage: 10 MG, OD
     Route: 065
  2. PREDNISOLONE. [Concomitant]
     Active Substance: PREDNISOLONE
     Dosage: 50 MG, OD
     Route: 065
  3. HYDROXYUREA. [Suspect]
     Active Substance: HYDROXYUREA
     Indication: CHRONIC MYELOMONOCYTIC LEUKAEMIA
     Dosage: 500 MG, OD
     Route: 065

REACTIONS (8)
  - Pulmonary haemorrhage [Unknown]
  - Lung abscess [Unknown]
  - Pneumonitis [Unknown]
  - Diffuse alveolar damage [Unknown]
  - Respiratory failure [Fatal]
  - Death [Fatal]
  - Interstitial lung disease [Unknown]
  - Organising pneumonia [Unknown]

NARRATIVE: CASE EVENT DATE: 2014
